FAERS Safety Report 7365826-3 (Version None)
Quarter: 2011Q1

REPORT INFORMATION
  Report Type: 
  Country: None (occurrence: None)
  Receive Date: 20110322
  Receipt Date: 20110309
  Transmission Date: 20110831
  Serious: Yes (Death, Other)
  Sender: FDA-Public Use
  Company Number: US-CELGENEUS-163-21880-11031232

PATIENT
  Age: 68 Year
  Sex: Male

DRUGS (2)
  1. ZOLOFT [Concomitant]
     Route: 065
  2. REVLIMID [Suspect]
     Indication: MULTIPLE MYELOMA
     Dosage: 10 MILLIGRAM
     Route: 048
     Dates: start: 20080301, end: 20091001

REACTIONS (5)
  - NO THERAPEUTIC RESPONSE [None]
  - HAEMOGLOBIN DECREASED [None]
  - NEUTROPHIL COUNT DECREASED [None]
  - DEATH [None]
  - PLATELET COUNT DECREASED [None]
